FAERS Safety Report 17614270 (Version 1)
Quarter: 2020Q2

REPORT INFORMATION
  Report Type: Spontaneous
  Country: FR (occurrence: FR)
  Receive Date: 20200402
  Receipt Date: 20200402
  Transmission Date: 20200713
  Serious: Yes (Death, Hospitalization)
  Sender: FDA-Public Use
  Company Number: FR-TEVA-2020-FR-1215244

PATIENT
  Age: 64 Year
  Sex: Female

DRUGS (11)
  1. PRIMPERAN [Concomitant]
     Active Substance: METOCLOPRAMIDE HYDROCHLORIDE
     Dosage: 40 MG
     Route: 042
     Dates: start: 20191122
  2. INSULINE [Concomitant]
     Active Substance: INSULIN NOS
     Route: 065
     Dates: start: 20191122
  3. ALVITYL, COMPRIME ENROBE [Concomitant]
     Dosage: 1 DF
     Route: 048
     Dates: start: 20191122
  4. MORPHINE [Concomitant]
     Active Substance: MORPHINE
     Dosage: 2 MG IF NECESSARY
     Route: 042
     Dates: start: 20191122
  5. PREGABALINE [Concomitant]
     Active Substance: PREGABALIN
     Dosage: 150 MG
     Route: 048
     Dates: start: 20191122
  6. PANTOPRAZOLE [Concomitant]
     Active Substance: PANTOPRAZOLE
     Dosage: 40 MG
     Route: 042
     Dates: start: 20191122
  7. ACICLOVIR [Concomitant]
     Active Substance: ACYCLOVIR
     Dosage: 750 MG
     Route: 042
     Dates: start: 20191122
  8. FILGRASTIM ((BACTERIE/ESCHERICHIA COLI)) [Concomitant]
     Active Substance: FILGRASTIM
     Dosage: 1 MG
     Route: 042
     Dates: start: 20191122
  9. BACTRIM [Concomitant]
     Active Substance: SULFAMETHOXAZOLE\TRIMETHOPRIM
     Dosage: 1 DF
     Route: 042
     Dates: start: 20191122
  10. METHOTREXATE. [Suspect]
     Active Substance: METHOTREXATE
     Indication: BURKITT^S LYMPHOMA
     Route: 065
     Dates: start: 20191003
  11. ZOPHREN 4 MG/2 ML, SOLUTION INJECTABLE EN SERINGUE PRE-REMPLIE [Concomitant]
     Dosage: 12 MG; IF NAUSEA AND VOMITING
     Route: 042
     Dates: start: 20191122

REACTIONS (2)
  - Condition aggravated [Fatal]
  - Lung disorder [Fatal]

NARRATIVE: CASE EVENT DATE: 20191004
